FAERS Safety Report 11104039 (Version 1)
Quarter: 2015Q2

REPORT INFORMATION
  Report Type: Spontaneous
  Country: BR (occurrence: BR)
  Receive Date: 20150511
  Receipt Date: 20150511
  Transmission Date: 20150821
  Serious: Yes (Hospitalization)
  Sender: FDA-Public Use
  Company Number: BR-GLAXOSMITHKLINE INC.-BR2015GSK062470

PATIENT
  Sex: Male
  Weight: 12 kg

DRUGS (3)
  1. PREDNISON [Concomitant]
     Active Substance: PREDNISONE
  2. AEROLIN [Suspect]
     Active Substance: ALBUTEROL
     Indication: ASTHMA
     Dosage: 1 PUFF(S), TID
     Route: 055
     Dates: start: 20141103
  3. MONTELUKAST SODIUM. [Suspect]
     Active Substance: MONTELUKAST SODIUM
     Indication: ASTHMA
     Dosage: 1 PUFF(S), QD
     Route: 048
     Dates: start: 20141103, end: 20150428

REACTIONS (1)
  - Asthma [Not Recovered/Not Resolved]
